FAERS Safety Report 15362591 (Version 1)
Quarter: 2018Q3

REPORT INFORMATION
  Report Type: Spontaneous
  Country: CY (occurrence: CY)
  Receive Date: 20180907
  Receipt Date: 20180907
  Transmission Date: 20181010
  Serious: Yes (Other)
  Sender: FDA-Public Use
  Company Number: CY-SA-2018SA148058

PATIENT
  Sex: Female

DRUGS (1)
  1. LEMTRADA [Suspect]
     Active Substance: ALEMTUZUMAB
     Dosage: UNK
     Route: 041
     Dates: start: 20180423, end: 20180427

REACTIONS (4)
  - Neutropenia [Recovered/Resolved]
  - Rash [Recovered/Resolved]
  - Haematuria [Recovered/Resolved]
  - Lymphopenia [Recovered/Resolved]
